FAERS Safety Report 18917856 (Version 1)
Quarter: 2021Q1

REPORT INFORMATION
  Report Type: Spontaneous
  Country: US (occurrence: US)
  Receive Date: 20210220
  Receipt Date: 20210220
  Transmission Date: 20210420
  Serious: Yes (Hospitalization)
  Sender: FDA-Public Use
  Company Number: US-AUROBINDO-AUR-APL-2021-006053

PATIENT
  Age: 2 Month
  Sex: Male

DRUGS (4)
  1. CEFTRIAXONE. [Suspect]
     Active Substance: CEFTRIAXONE
     Indication: DACRYOCYSTITIS
     Dosage: UNK
     Route: 030
  2. AMOXICILLIN. [Suspect]
     Active Substance: AMOXICILLIN
     Indication: DACRYOCYSTITIS
     Dosage: UNK
     Route: 048
  3. CLINDAMYCIN. [Suspect]
     Active Substance: CLINDAMYCIN
     Indication: DACRYOCYSTITIS
     Dosage: UNK
     Route: 048
  4. PROPRANOLOL [Concomitant]
     Active Substance: PROPRANOLOL HYDROCHLORIDE
     Indication: INFANTILE HAEMANGIOMA
     Dosage: UNK

REACTIONS (3)
  - Drug ineffective [Unknown]
  - Product use in unapproved indication [Unknown]
  - Dermatitis allergic [Unknown]
